FAERS Safety Report 20763185 (Version 3)
Quarter: 2023Q2

REPORT INFORMATION
  Report Type: Spontaneous
  Country: SI (occurrence: SI)
  Receive Date: 20220428
  Receipt Date: 20230427
  Transmission Date: 20230722
  Serious: Yes (Death)
  Sender: FDA-Public Use
  Company Number: SI-PFIZER INC-202200628457

PATIENT
  Age: 70 Year
  Sex: Male

DRUGS (1)
  1. VYNDAQEL [Suspect]
     Active Substance: TAFAMIDIS MEGLUMINE
     Indication: Cardiac amyloidosis
     Dosage: 61 MG

REACTIONS (3)
  - Sepsis [Fatal]
  - Wound [Fatal]
  - Infection [Fatal]
